FAERS Safety Report 22163895 (Version 1)
Quarter: 2023Q2

REPORT INFORMATION
  Report Type: Report from Study
  Country: CA (occurrence: CA)
  Receive Date: 20230401
  Receipt Date: 20230401
  Transmission Date: 20230721
  Serious: Yes (Other)
  Sender: FDA-Public Use
  Company Number: CA-002147023-NVSC2022CA040747

PATIENT
  Age: 36 Year
  Sex: Female

DRUGS (4)
  1. HYRIMOZ [Suspect]
     Active Substance: ADALIMUMAB-ADAZ
     Indication: Crohn^s disease
     Dosage: 40 MG, QW
     Route: 058
     Dates: start: 20210916
  2. HYRIMOZ [Suspect]
     Active Substance: ADALIMUMAB-ADAZ
     Dosage: UNK
     Route: 065
     Dates: start: 20220217
  3. METHOTREXATE [Suspect]
     Active Substance: METHOTREXATE
     Indication: Product used for unknown indication
     Dosage: UNK
     Route: 065
     Dates: start: 202107
  4. METHOTREXATE [Suspect]
     Active Substance: METHOTREXATE
     Dosage: 1 ML, QW
     Route: 065

REACTIONS (9)
  - Crohn^s disease [Unknown]
  - Stress [Recovering/Resolving]
  - Faecal calprotectin decreased [Recovering/Resolving]
  - C-reactive protein increased [Unknown]
  - Faecal calprotectin increased [Unknown]
  - Abdominal pain [Recovering/Resolving]
  - General physical health deterioration [Unknown]
  - Faeces soft [Unknown]
  - Off label use [Unknown]
